FAERS Safety Report 5020155-8 (Version None)
Quarter: 2006Q2

REPORT INFORMATION
  Report Type: 
  Country: None (occurrence: None)
  Receive Date: 20060602
  Receipt Date: 20060512
  Transmission Date: 20061013
  Serious: Yes (Hospitalization)
  Sender: FDA-Public Use
  Company Number: DE200605003162

PATIENT
  Sex: Male

DRUGS (3)
  1. ALIMTA [Suspect]
     Indication: PLEURAL MESOTHELIOMA
     Dosage: INTRAVENOUS
     Route: 042
     Dates: start: 20051201, end: 20060201
  2. FOLIC ACID [Concomitant]
  3. VITAMIN B12(CYANCOBALAMIN) [Concomitant]

REACTIONS (4)
  - ANAEMIA [None]
  - CONDITION AGGRAVATED [None]
  - HAEMATOTOXICITY [None]
  - VOMITING [None]
